FAERS Safety Report 8451225-X (Version None)
Quarter: 2012Q2

REPORT INFORMATION
  Report Type: 
  Country: None (occurrence: None)
  Receive Date: 20120620
  Receipt Date: 20120326
  Transmission Date: 20120825
  Serious: No
  Sender: FDA-Public Use
  Company Number: US-VERTEX PHARMACEUTICALS INC.-AE-2012-000673

PATIENT
  Sex: Male
  Weight: 73.412 kg

DRUGS (8)
  1. PEGASYS [Concomitant]
     Indication: HEPATITIS C
     Route: 058
     Dates: start: 20120105
  2. INCIVEK [Suspect]
     Indication: HEPATITIS C
     Route: 048
     Dates: start: 20120105, end: 20120324
  3. RIBAPACK [Concomitant]
     Indication: HEPATITIS C
     Route: 048
     Dates: start: 20120105
  4. TRAZODONE HCL [Concomitant]
     Indication: INSOMNIA
  5. CLONAZEPAM [Concomitant]
  6. KLONOPIN [Concomitant]
     Indication: ANXIETY
  7. PEGASYS [Concomitant]
     Route: 058
     Dates: start: 20120301
  8. KLONOPIN [Concomitant]
     Indication: RESTLESS LEGS SYNDROME

REACTIONS (16)
  - RASH GENERALISED [None]
  - CHILLS [None]
  - ANXIETY [None]
  - ARTHRALGIA [None]
  - NIGHT SWEATS [None]
  - INFLUENZA LIKE ILLNESS [None]
  - PLATELET COUNT DECREASED [None]
  - PAPULE [None]
  - WHITE BLOOD CELL COUNT DECREASED [None]
  - CONFUSIONAL STATE [None]
  - RED BLOOD CELL COUNT DECREASED [None]
  - FATIGUE [None]
  - PARAESTHESIA [None]
  - RASH MACULO-PAPULAR [None]
  - DYSPNOEA [None]
  - HEART RATE INCREASED [None]
